FAERS Safety Report 12119669 (Version 1)
Quarter: 2016Q1

REPORT INFORMATION
  Report Type: Spontaneous
  Country: US (occurrence: US)
  Receive Date: 20160226
  Receipt Date: 20160226
  Transmission Date: 20160526
  Serious: Yes (Other)
  Sender: FDA-Public Use
  Company Number: US-ASTRAZENECA-2016SE17953

PATIENT

DRUGS (1)
  1. NEXIUM [Suspect]
     Active Substance: ESOMEPRAZOLE MAGNESIUM
     Indication: PRODUCT USED FOR UNKNOWN INDICATION
     Dosage: FIVE TIMES A WEEK
     Route: 065

REACTIONS (4)
  - Dyspepsia [Unknown]
  - Off label use [Unknown]
  - Hepatic cancer [Unknown]
  - Abdominal pain upper [Unknown]
